FAERS Safety Report 8920674 (Version 2)
Quarter: 2013Q1

REPORT INFORMATION
  Report Type: Spontaneous
  Country: BE (occurrence: BE)
  Receive Date: 20121121
  Receipt Date: 20130218
  Transmission Date: 20140127
  Serious: Yes (Other)
  Sender: FDA-Public Use
  Company Number: BE-ROCHE-1154431

PATIENT
  Sex: Male

DRUGS (7)
  1. XOLAIR [Suspect]
     Indication: ASTHMA
     Route: 065
     Dates: start: 201209
  2. INUVAIR [Concomitant]
  3. SERETIDE [Concomitant]
  4. NASONEX [Concomitant]
  5. CIRRUS [Concomitant]
  6. MONTELUKAST [Concomitant]
  7. CETIRIZINE HYDROCHLORIDE [Concomitant]

REACTIONS (6)
  - Asthma [Unknown]
  - Bronchospasm [Recovering/Resolving]
  - Swelling face [Recovering/Resolving]
  - Oedema mouth [Recovering/Resolving]
  - Swollen tongue [Recovered/Resolved]
  - Erythema [Recovering/Resolving]
